FAERS Safety Report 7738176-0 (Version None)
Quarter: 2011Q3

REPORT INFORMATION
  Report Type: 
  Country: None (occurrence: None)
  Receive Date: 20110908
  Receipt Date: 20110906
  Transmission Date: 20111222
  Serious: Yes (Life-Threatening, Other)
  Sender: FDA-Public Use
  Company Number: RU-PFIZER INC-2010063509

PATIENT
  Age: 24 Year
  Sex: Male
  Weight: 64 kg

DRUGS (22)
  1. VORICONAZOLE [Suspect]
     Dosage: 250 MG, 2X/DAY
     Route: 042
     Dates: start: 20100513
  2. ALBUMIN HUMAN [Concomitant]
     Indication: HYPOALBUMINAEMIA
     Dosage: UNK
     Dates: start: 20100507, end: 20100602
  3. CLARITHROMYCIN [Concomitant]
     Indication: INFECTION
     Dosage: UNK
     Dates: start: 20100514, end: 20100517
  4. VORICONAZOLE [Suspect]
     Indication: ASPERGILLOSIS
     Dosage: 370 MG, 2X/DAY
     Route: 042
     Dates: start: 20100512, end: 20100512
  5. LASIX [Concomitant]
     Indication: FLUID RETENTION
     Dosage: UNK
     Dates: start: 20100510, end: 20100624
  6. TIENAM [Concomitant]
     Indication: INFECTION
     Dosage: UNK
     Dates: start: 20100512, end: 20100520
  7. ANIDULAFUNGIN [Suspect]
     Indication: ASPERGILLOSIS
     Dosage: 100 MG, 1X/DAY
     Route: 042
     Dates: start: 20100512, end: 20100608
  8. CYCLOSPORINE [Concomitant]
     Indication: GRAFT VERSUS HOST DISEASE
     Dosage: UNK
     Dates: start: 20100425, end: 20100528
  9. DICLOFENAC [Concomitant]
     Indication: OEDEMA
     Dosage: UNK
     Route: 042
     Dates: start: 20100505, end: 20100617
  10. IMMUNOGLOBULINS [Concomitant]
     Indication: IMMUNOSUPPRESSION
     Dosage: UNK
     Dates: start: 20100506, end: 20100506
  11. CELLCEPT [Concomitant]
     Indication: GRAFT VERSUS HOST DISEASE
     Dosage: UNK
     Dates: start: 20100505, end: 20100516
  12. MEROPENEM [Concomitant]
     Indication: PNEUMONIA
     Dosage: UNK
     Dates: start: 20100505, end: 20100510
  13. COTRIM [Concomitant]
     Indication: PNEUMONIA
     Dosage: UNK
     Dates: start: 20100505, end: 20100616
  14. INSULIN [Concomitant]
     Indication: DIABETES MELLITUS
     Dosage: UNK
     Dates: start: 20100505
  15. METHYLPREDNISOLONE [Suspect]
     Indication: GRAFT VERSUS HOST DISEASE
     Dosage: 64 MG, 1X/DAY
     Route: 048
     Dates: start: 20100423, end: 20100517
  16. LANTUS [Concomitant]
     Indication: DIABETES MELLITUS
     Dosage: UNK
     Dates: start: 20100505, end: 20100629
  17. ACICLOVIR [Concomitant]
     Indication: ANTIVIRAL PROPHYLAXIS
     Dosage: UNK
     Dates: start: 20100507, end: 20100516
  18. LINEZOLID [Concomitant]
     Indication: PNEUMONIA
     Dosage: UNK
     Dates: start: 20100505, end: 20100516
  19. SUPRASTIN [Concomitant]
     Indication: HYPERSENSITIVITY
     Dosage: UNK
     Dates: start: 20100505, end: 20100617
  20. FOLIC ACID [Concomitant]
     Indication: ANAEMIA PROPHYLAXIS
     Dosage: UNK
     Dates: start: 20100505
  21. OMEPRAZOLE [Concomitant]
     Indication: PROPHYLAXIS AGAINST GASTROINTESTINAL ULCER
     Dosage: UNK
     Dates: start: 20100423, end: 20100516
  22. IMMUNOGLOBULIN HUMAN NORMAL [Concomitant]
     Indication: IMMUNOSUPPRESSION
     Dosage: UNK
     Dates: start: 20100513, end: 20100603

REACTIONS (1)
  - DUODENAL ULCER HAEMORRHAGE [None]
